FAERS Safety Report 19380497 (Version 3)
Quarter: 2021Q2

REPORT INFORMATION
  Report Type: Spontaneous
  Country: JP (occurrence: JP)
  Receive Date: 20210607
  Receipt Date: 20210621
  Transmission Date: 20210717
  Serious: Yes (Death, Other)
  Sender: FDA-Public Use
  Company Number: JP-JNJFOC-20210328378

PATIENT
  Age: 69 Year
  Sex: Male
  Weight: 55.9 kg

DRUGS (7)
  1. ENVIOMYCIN SULFATE [Concomitant]
     Active Substance: ENVIOMYCIN SULFATE
     Indication: PULMONARY TUBERCULOSIS
     Dosage: DOSE UNKNOWN
     Route: 065
  2. DELAMANID [Concomitant]
     Active Substance: DELAMANID
     Indication: PULMONARY TUBERCULOSIS
     Dosage: DOSE UNKNOWN
     Route: 048
  3. SIRTURO [Suspect]
     Active Substance: BEDAQUILINE FUMARATE
     Indication: PULMONARY TUBERCULOSIS
     Route: 048
     Dates: start: 20200622, end: 20200923
  4. LINEZOLID. [Concomitant]
     Active Substance: LINEZOLID
     Indication: PULMONARY TUBERCULOSIS
     Dosage: DOSE UNKNOWN
     Route: 065
  5. IMIPENEM AND CILASTATIN [Concomitant]
     Active Substance: CILASTATIN SODIUM\IMIPENEM
     Indication: PULMONARY TUBERCULOSIS
     Dosage: DOSE UNKNOWN
     Route: 065
  6. CYCLOSERINE. [Concomitant]
     Active Substance: CYCLOSERINE
     Indication: PULMONARY TUBERCULOSIS
     Dosage: DOSE UNKNOWN
     Route: 048
  7. CLOFAZIMINE [Suspect]
     Active Substance: CLOFAZIMINE
     Indication: PULMONARY TUBERCULOSIS
     Dosage: DOSE UNKNOWN
     Route: 048

REACTIONS (2)
  - Pulmonary tuberculosis [Fatal]
  - Electrocardiogram QT prolonged [Recovering/Resolving]
